FAERS Safety Report 15020631 (Version 1)
Quarter: 2018Q2

REPORT INFORMATION
  Report Type: Spontaneous
  Country: US (occurrence: US)
  Receive Date: 20180618
  Receipt Date: 20180618
  Transmission Date: 20180711
  Serious: Yes (Life-Threatening, Hospitalization, Other)
  Sender: FDA-Public Use
  Company Number: US-BAUSCH-BL-2018-016721

PATIENT
  Age: 42 Year
  Sex: Male

DRUGS (11)
  1. PAROXETINE. [Interacting]
     Active Substance: PAROXETINE
     Indication: ANXIETY
  2. PANAX GINSENG ROOT [Interacting]
     Active Substance: ASIAN GINSENG
     Indication: PHYTOTHERAPY
     Route: 065
  3. FENTANYL. [Suspect]
     Active Substance: FENTANYL
     Indication: PRODUCT USED FOR UNKNOWN INDICATION
     Route: 065
  4. VASOPRESSIN. [Concomitant]
     Active Substance: VASOPRESSIN
     Indication: HYPOTENSION
  5. BUPROPION XL [Suspect]
     Active Substance: BUPROPION
     Indication: ATTENTION DEFICIT/HYPERACTIVITY DISORDER
     Dosage: EXTENDED RELEASE (XL)
     Route: 065
  6. PAROXETINE. [Interacting]
     Active Substance: PAROXETINE
     Indication: DEPRESSION
     Route: 048
  7. METHYLENE BLUE. [Suspect]
     Active Substance: METHYLENE BLUE
     Indication: HYPOTENSION
     Route: 065
  8. ENOXAPARIN [Concomitant]
     Active Substance: ENOXAPARIN
     Indication: PRODUCT USED FOR UNKNOWN INDICATION
  9. FENUGREEK [Suspect]
     Active Substance: FENUGREEK SEED
     Indication: PHYTOTHERAPY
     Route: 065
  10. NOREPINEPHRINE. [Concomitant]
     Active Substance: NOREPINEPHRINE
     Indication: HYPOTENSION
  11. METOPROLOL. [Concomitant]
     Active Substance: METOPROLOL
     Indication: ATRIAL FIBRILLATION
     Dosage: 12; HOURS
     Route: 048

REACTIONS (21)
  - Arrhythmia [None]
  - Mental status changes [None]
  - Anxiety [None]
  - Nightmare [None]
  - Gait disturbance [None]
  - Left ventricular hypertrophy [None]
  - Disorientation [None]
  - Cardiac murmur [None]
  - Electroencephalogram abnormal [None]
  - Bradycardia [None]
  - Atrial fibrillation [None]
  - Right ventricular failure [None]
  - Herbal interaction [Recovering/Resolving]
  - Left ventricle outflow tract obstruction [None]
  - Suspiciousness [None]
  - Delirium [None]
  - Drug interaction [Recovering/Resolving]
  - Respiratory rate increased [None]
  - Serotonin syndrome [Recovering/Resolving]
  - Cardiac septal hypertrophy [None]
  - Neuromyopathy [None]
